FAERS Safety Report 8621863-X (Version None)
Quarter: 2012Q3

REPORT INFORMATION
  Report Type: 
  Country: None (occurrence: None)
  Receive Date: 20120822
  Receipt Date: 20120822
  Transmission Date: 20120928
  Serious: No
  Sender: FDA-Public Use
  Company Number: None

PATIENT
  Age: 48 Year
  Sex: Male
  Weight: 64 kg

DRUGS (2)
  1. ATAZANAVIR [Suspect]
     Indication: HIV INFECTION
     Dosage: 300 MG PO
     Route: 048
     Dates: start: 20120214, end: 20120814
  2. RILPIVIRINE [Suspect]
     Indication: HIV INFECTION
     Dosage: 255 MG EVERY DAY PO
     Route: 048
     Dates: start: 20120214, end: 20120815

REACTIONS (2)
  - BLOOD CREATININE INCREASED [None]
  - BLOOD UREA INCREASED [None]
